FAERS Safety Report 19261074 (Version 1)
Quarter: 2021Q2

REPORT INFORMATION
  Report Type: Spontaneous
  Country: CN (occurrence: CN)
  Receive Date: 20210515
  Receipt Date: 20210515
  Transmission Date: 20210717
  Serious: Yes (Other)
  Sender: FDA-Public Use
  Company Number: CN-JNJFOC-20210526991

PATIENT
  Age: 62 Year
  Sex: Male
  Weight: 60 kg

DRUGS (2)
  1. TRAMADOL HYDROCHLORIDE. [Suspect]
     Active Substance: TRAMADOL HYDROCHLORIDE
     Indication: ABDOMINAL PAIN
     Route: 065
  2. TRAMADOL HYDROCHLORIDE. [Suspect]
     Active Substance: TRAMADOL HYDROCHLORIDE
     Indication: ABDOMINAL PAIN UPPER
     Dosage: 0.1 GRAM, 1/DAY
     Route: 030
     Dates: start: 20210105, end: 20210105

REACTIONS (2)
  - Urinary retention [Recovering/Resolving]
  - Abdominal distension [Recovering/Resolving]

NARRATIVE: CASE EVENT DATE: 20210106
